FAERS Safety Report 4823279-0 (Version None)
Quarter: 2005Q4

REPORT INFORMATION
  Report Type: 
  Country: None (occurrence: None)
  Receive Date: 20051107
  Receipt Date: 20051024
  Transmission Date: 20060501
  Serious: Yes (Hospitalization)
  Sender: FDA-Public Use
  Company Number: 2005147670

PATIENT
  Age: 81 Year
  Sex: Female

DRUGS (9)
  1. LYRICA [Suspect]
     Indication: NEUROPATHY PERIPHERAL
     Dosage: 75 MG, ORAL
     Route: 048
     Dates: start: 20051020, end: 20051020
  2. NORVASC [Concomitant]
  3. DIURETICS (DIURETICS) [Concomitant]
  4. CALCIUM (CALCIUM) [Concomitant]
  5. ATIVAN [Concomitant]
  6. NORTRIPTYLINE HCL [Concomitant]
  7. ALL OTHER THERAPEUTIC PRODUCTS [Concomitant]
  8. OTHER ANTI-ASTHMATICS, INHALANTS [Concomitant]
  9. NITROSTAT [Concomitant]

REACTIONS (4)
  - CONFUSIONAL STATE [None]
  - DISORIENTATION [None]
  - DIZZINESS [None]
  - TREMOR [None]
